FAERS Safety Report 9193320 (Version 1)
Quarter: 2013Q1

REPORT INFORMATION
  Report Type: Report from Study
  Country: US (occurrence: US)
  Receive Date: 20130327
  Receipt Date: 20130327
  Transmission Date: 20140127
  Serious: Yes (Hospitalization, Other)
  Sender: FDA-Public Use
  Company Number: US-ROCHE-1091445

PATIENT
  Age: 57 Year
  Sex: Female
  Weight: 75.82 kg

DRUGS (11)
  1. CAPECITABINE [Suspect]
     Indication: BREAST CANCER METASTATIC
     Route: 048
     Dates: start: 20120410, end: 20120508
  2. CAPECITABINE [Suspect]
     Route: 048
     Dates: start: 20120508, end: 20120522
  3. CAPECITABINE [Suspect]
     Dosage: ONE WEEK ON AND ONE WEEK OFF
     Route: 048
     Dates: start: 20120826
  4. CAPECITABINE [Suspect]
     Route: 048
     Dates: start: 20120522
  5. LANTUS [Concomitant]
     Indication: DIABETES MELLITUS
     Dosage: 30 UNITS DAILY
     Route: 058
  6. SYNTHROID [Concomitant]
     Indication: HYPOTHYROIDISM
     Route: 048
  7. LAMICTAL [Concomitant]
     Indication: DEPRESSION
     Route: 048
  8. OMEPRAZOL [Concomitant]
     Route: 048
  9. LISINOPRIL [Concomitant]
     Indication: HYPERTENSION
     Route: 048
  10. GEMFIBROZIL [Concomitant]
     Route: 048
  11. NEURONTIN [Concomitant]
     Indication: PAIN
     Route: 048

REACTIONS (26)
  - Hypoaesthesia [Unknown]
  - Pain in extremity [Recovering/Resolving]
  - Pain in extremity [Recovering/Resolving]
  - Nausea [Not Recovered/Not Resolved]
  - Fatigue [Unknown]
  - Insomnia [Unknown]
  - Palmar-plantar erythrodysaesthesia syndrome [Recovered/Resolved]
  - Erythema [Unknown]
  - Pain in extremity [Unknown]
  - Pain in extremity [Recovered/Resolved]
  - Dizziness [Unknown]
  - Stomatitis [Recovered/Resolved]
  - Hypoaesthesia [Recovered/Resolved]
  - Hepatic enzyme increased [Not Recovered/Not Resolved]
  - Heart rate increased [Recovered/Resolved]
  - Pain in extremity [Recovering/Resolving]
  - Paraesthesia [Not Recovered/Not Resolved]
  - Hypoaesthesia [Not Recovered/Not Resolved]
  - Burning sensation [Not Recovered/Not Resolved]
  - Hyperaesthesia [Not Recovered/Not Resolved]
  - Limb discomfort [Not Recovered/Not Resolved]
  - Erythema [Not Recovered/Not Resolved]
  - Memory impairment [Not Recovered/Not Resolved]
  - Memory impairment [Not Recovered/Not Resolved]
  - Medical device complication [Recovered/Resolved]
  - Myocardial infarction [Recovered/Resolved]
